FAERS Safety Report 14419389 (Version 2)
Quarter: 2018Q1

REPORT INFORMATION
  Report Type: Spontaneous
  Country: GB (occurrence: GB)
  Receive Date: 20180122
  Receipt Date: 20180123
  Transmission Date: 20180509
  Serious: Yes (Hospitalization)
  Sender: FDA-Public Use
  Company Number: GB-MYLANLABS-2018M1002961

PATIENT
  Age: 59 Year
  Sex: Male

DRUGS (2)
  1. CLOZARIL [Suspect]
     Active Substance: CLOZAPINE
     Indication: SCHIZOPHRENIA
     Dosage: UNK
     Route: 048
     Dates: start: 19980310, end: 20171218
  2. CLOZARIL [Suspect]
     Active Substance: CLOZAPINE
     Dosage: UNK
     Route: 048
     Dates: start: 20180108

REACTIONS (4)
  - Blood albumin decreased [Unknown]
  - Malaise [Unknown]
  - Mental impairment [Unknown]
  - Impaired self-care [Unknown]

NARRATIVE: CASE EVENT DATE: 201801
